FAERS Safety Report 12010190 (Version 1)
Quarter: 2016Q1

REPORT INFORMATION
  Report Type: Spontaneous
  Country: FR (occurrence: FR)
  Receive Date: 20160205
  Receipt Date: 20160205
  Transmission Date: 20160526
  Serious: Yes (Other)
  Sender: FDA-Public Use
  Company Number: FR-PFIZER INC-2016047951

PATIENT
  Age: 19 Year
  Sex: Female

DRUGS (1)
  1. TRINORDIOL [Suspect]
     Active Substance: ETHINYL ESTRADIOL\LEVONORGESTREL
     Dosage: (50-75-125MICROGR/30-40-30MICROGR), UNK

REACTIONS (1)
  - Gastroenteritis [Not Recovered/Not Resolved]
